FAERS Safety Report 5075993-2 (Version None)
Quarter: 2006Q3

REPORT INFORMATION
  Report Type: 
  Country: None (occurrence: None)
  Receive Date: 20060808
  Receipt Date: 20060808
  Transmission Date: 20061208
  Serious: No
  Sender: FDA-Public Use
  Company Number: None

PATIENT
  Sex: Male
  Weight: 81.6475 kg

DRUGS (1)
  1. GADOLINIUM CONTRAST AGENT [Suspect]
     Indication: RENAL FAILURE CHRONIC

REACTIONS (3)
  - DIALYSIS [None]
  - NEPHROGENIC FIBROSING DERMOPATHY [None]
  - RENAL TRANSPLANT [None]
